FAERS Safety Report 12963914 (Version 2)
Quarter: 2016Q4

REPORT INFORMATION
  Report Type: Spontaneous
  Country: US (occurrence: US)
  Receive Date: 20161122
  Receipt Date: 20161125
  Transmission Date: 20170207
  Serious: Yes (Death, Life-Threatening, Hospitalization, Other)
  Sender: FDA-Public Use
  Company Number: US-SUN PHARMACEUTICAL INDUSTRIES LTD-2016US-128211

PATIENT
  Age: 28 Year
  Sex: Female

DRUGS (3)
  1. FLUOROURACIL. [Suspect]
     Active Substance: FLUOROURACIL
     Indication: METASTATIC GASTRIC CANCER
     Dosage: FIRST CYCLE, FOLLOWED BY THE SECOND CYCLE AFTER 2 WEEKS
     Route: 065
  2. CALCIUM FOLINAT [Suspect]
     Active Substance: LEUCOVORIN CALCIUM
     Indication: METASTATIC GASTRIC CANCER
     Dosage: FIRST CYCLE, FOLLOWED BY THE SECOND CYCLE AFTER 2 WEEKS
     Route: 065
  3. IRINOTECAN [Suspect]
     Active Substance: IRINOTECAN
     Indication: METASTATIC GASTRIC CANCER
     Dosage: FIRST CYCLE, FOLLOWED BY THE SECOND CYCLE AFTER 2 WEEKS
     Route: 065

REACTIONS (5)
  - Acute respiratory failure [Unknown]
  - Septic shock [Unknown]
  - Cardiogenic shock [Unknown]
  - Death [Fatal]
  - Posterior reversible encephalopathy syndrome [Unknown]
